FAERS Safety Report 21042238 (Version 1)
Quarter: 2022Q3

REPORT INFORMATION
  Report Type: Spontaneous
  Country: US (occurrence: US)
  Receive Date: 20220705
  Receipt Date: 20220705
  Transmission Date: 20221026
  Serious: Yes (Other)
  Sender: FDA-Public Use
  Company Number: US-JNJFOC-20220700196

PATIENT
  Sex: Female

DRUGS (1)
  1. XARELTO [Suspect]
     Active Substance: RIVAROXABAN
     Indication: Product used for unknown indication
     Route: 048

REACTIONS (7)
  - Hip fracture [Unknown]
  - Joint dislocation [Unknown]
  - Fall [Unknown]
  - Heart rate increased [Unknown]
  - Oedema peripheral [Unknown]
  - Dizziness [Unknown]
  - Dyspnoea [Unknown]
